FAERS Safety Report 9959360 (Version 2)
Quarter: 2014Q1

REPORT INFORMATION
  Report Type: Report from Study
  Country: US (occurrence: US)
  Receive Date: 20140305
  Receipt Date: 20140305
  Transmission Date: 20141002
  Serious: No
  Sender: FDA-Public Use
  Company Number: US-ABBVIE-13P-163-1038940-00

PATIENT
  Sex: Male
  Weight: 72.64 kg

DRUGS (8)
  1. HUMIRA [Suspect]
     Indication: COLITIS ULCERATIVE
     Route: 058
     Dates: start: 20111025, end: 20121025
  2. HUMIRA [Suspect]
     Route: 058
     Dates: start: 20121108, end: 20121108
  3. HUMIRA [Suspect]
     Route: 058
     Dates: start: 20121122
  4. GLUCOSAMINE/CHONDROITIN [Concomitant]
     Indication: PRODUCT USED FOR UNKNOWN INDICATION
     Dosage: DAILY
  5. FISH OIL [Concomitant]
     Indication: NUTRITIONAL SUPPLEMENTATION
     Dosage: DAILY
  6. BIOTIN [Concomitant]
     Indication: NUTRITIONAL SUPPLEMENTATION
  7. MELATONIN [Concomitant]
     Indication: INSOMNIA
     Dosage: AT BEDTIME ON THE WEEKENDS
  8. MULTIVITAMIN [Concomitant]
     Indication: NUTRITIONAL SUPPLEMENTATION

REACTIONS (4)
  - Skin exfoliation [Not Recovered/Not Resolved]
  - Eyelid exfoliation [Not Recovered/Not Resolved]
  - Pruritus [Not Recovered/Not Resolved]
  - Skin papilloma [Not Recovered/Not Resolved]
